FAERS Safety Report 25016825 (Version 1)
Quarter: 2025Q1

REPORT INFORMATION
  Report Type: Spontaneous
  Country: US (occurrence: US)
  Receive Date: 20250227
  Receipt Date: 20250227
  Transmission Date: 20250409
  Serious: No
  Sender: UCB
  Company Number: US-UCBSA-2024043424

PATIENT
  Age: 20 Year
  Sex: Male

DRUGS (4)
  1. LEVETIRACETAM [Suspect]
     Active Substance: LEVETIRACETAM
     Indication: Sturge-Weber syndrome
     Dosage: 1 GRAM, 2X/DAY (BID)
  2. LEVETIRACETAM [Suspect]
     Active Substance: LEVETIRACETAM
     Indication: Seizure prophylaxis
  3. LEVETIRACETAM [Suspect]
     Active Substance: LEVETIRACETAM
     Indication: Off label use
  4. CABERGOLINE [Concomitant]
     Active Substance: CABERGOLINE
     Indication: Blood prolactin increased
     Dosage: 0.5 MILLIGRAM, 2X/DAY (BID)

REACTIONS (1)
  - No adverse event [Unknown]
